FAERS Safety Report 6059797-X (Version None)
Quarter: 2009Q1

REPORT INFORMATION
  Report Type: 
  Country: None (occurrence: None)
  Receive Date: 20090130
  Receipt Date: 20080711
  Transmission Date: 20090719
  Serious: No
  Sender: FDA-Public Use
  Company Number: US-ABBOTT-08P-163-0460745-00

PATIENT
  Sex: Female
  Weight: 54.48 kg

DRUGS (1)
  1. LUPRON DEPOT [Suspect]
     Indication: ENDOMETRIOSIS
     Dates: start: 20080115, end: 20080415

REACTIONS (7)
  - HAEMORRHAGIC OVARIAN CYST [None]
  - MIGRAINE [None]
  - PAIN [None]
  - PALPITATIONS [None]
  - UNEVALUABLE EVENT [None]
  - VAGINAL HAEMORRHAGE [None]
  - VAGINITIS BACTERIAL [None]
